FAERS Safety Report 8167556 (Version 3)
Quarter: 2013Q2

REPORT INFORMATION
  Report Type: Spontaneous
  Country: US (occurrence: US)
  Receive Date: 20111004
  Receipt Date: 20130424
  Transmission Date: 20140414
  Serious: Yes (Hospitalization, Other)
  Sender: FDA-Public Use
  Company Number: US-PFIZER INC-2011233616

PATIENT
  Age: 6 Year
  Sex: Female

DRUGS (4)
  1. DILANTIN-125 [Suspect]
     Dosage: 125 MG/5 CC HALF TEA SPOON, 2XDAY
     Route: 048
     Dates: start: 19970707, end: 199707
  2. DILANTIN [Suspect]
     Indication: CONVULSION
     Dosage: 75 MG, 2X/DAY
     Route: 048
     Dates: start: 19970705, end: 199707
  3. DILANTIN [Suspect]
     Dosage: 450 MG OVER ONE HOUR
     Route: 042
     Dates: start: 19970705, end: 19970705
  4. TYLENOL [Concomitant]
     Dosage: 370 MG, EVERY 4 HRS AS NEEDED
     Route: 048
     Dates: start: 19970705

REACTIONS (1)
  - Stevens-Johnson syndrome [Unknown]
